FAERS Safety Report 21161807 (Version 1)
Quarter: 2022Q3

REPORT INFORMATION
  Report Type: Spontaneous
  Country: US (occurrence: None)
  Receive Date: 20220802
  Receipt Date: 20220802
  Transmission Date: 20221026
  Serious: Yes (Disabling)
  Sender: FDA-Public Use
  Company Number: None

PATIENT
  Age: 67 Year
  Sex: Female
  Weight: 63.45 kg

DRUGS (7)
  1. DOXYCYCLINE HYCLATE [Suspect]
     Active Substance: DOXYCYCLINE HYCLATE
     Indication: Hordeolum
     Dosage: FREQUENCY : TWICE A DAY;?
     Route: 048
     Dates: start: 20220701, end: 20220715
  2. LEVOTHYROXINE [Concomitant]
     Active Substance: LEVOTHYROXINE
  3. METOPROLOL [Concomitant]
     Active Substance: METOPROLOL
  4. GABAPENTIN [Concomitant]
     Active Substance: GABAPENTIN
  5. LOVASTATIN [Concomitant]
     Active Substance: LOVASTATIN
  6. FIBER [Concomitant]
     Active Substance: PSYLLIUM HUSK
  7. Women^s multivitamin [Concomitant]

REACTIONS (1)
  - Chapped lips [None]

NARRATIVE: CASE EVENT DATE: 20220704
